FAERS Safety Report 25649136 (Version 1)
Quarter: 2025Q3

REPORT INFORMATION
  Report Type: Spontaneous
  Country: GB (occurrence: GB)
  Receive Date: 20250806
  Receipt Date: 20250806
  Transmission Date: 20251021
  Serious: Yes (Other)
  Sender: DR REDDYS
  Company Number: None

PATIENT
  Age: 84 Year
  Sex: Male
  Weight: 60 kg

DRUGS (21)
  1. ZOLEDRONIC ACID [Suspect]
     Active Substance: ZOLEDRONIC ACID
     Indication: Product used for unknown indication
  2. NAPROXEN [Concomitant]
     Active Substance: NAPROXEN
     Indication: Ill-defined disorder
     Dosage: TAKE ONE 3 TIMES/DAY FOR 3-5 DAYS
     Dates: start: 20250430, end: 20250528
  3. ACETAMINOPHEN [Concomitant]
     Active Substance: ACETAMINOPHEN
     Indication: Ill-defined disorder
     Dosage: TAKE ONE OR TWO FOUR TIMES/DAY WHEN REQUIRED FO...
     Dates: start: 20250521, end: 20250618
  4. HYDROXOCOBALAMIN [Concomitant]
     Active Substance: HYDROXOCOBALAMIN
     Indication: Ill-defined disorder
     Route: 030
     Dates: start: 20250210
  5. FERRIC MALTOL [Concomitant]
     Active Substance: FERRIC MALTOL
     Indication: Ill-defined disorder
     Dosage: TAKE ONE TWICE DAILY
     Dates: start: 20250214
  6. ADCAL [Concomitant]
     Indication: Ill-defined disorder
     Dosage: TAKE ONE TABLET TWICE A DAY
     Dates: start: 20250214
  7. ATORVASTATIN [Concomitant]
     Active Substance: ATORVASTATIN
     Indication: Ill-defined disorder
     Dosage: TAKE ONE TABLET ONCE A DAY
     Dates: start: 20250214
  8. BENZYDAMINE HYDROCHLORIDE [Concomitant]
     Active Substance: BENZYDAMINE HYDROCHLORIDE
     Indication: Ill-defined disorder
     Dosage: 15ML EVERY 3 HRS
     Dates: start: 20250214
  9. BEVESPI AEROSPHERE [Concomitant]
     Active Substance: FORMOTEROL FUMARATE\GLYCOPYRROLATE
     Indication: Ill-defined disorder
     Dosage: INHALE TWO DOSES TWICE A DAY (PLEASE RETURN YOU...
     Route: 055
     Dates: start: 20250214
  10. BIMATOPROST [Concomitant]
     Active Substance: BIMATOPROST
     Indication: Ill-defined disorder
     Dosage: ONE DROP ONCE DAILY TO BOTH EYES IN THE EVENING
     Dates: start: 20250214
  11. CREON [Concomitant]
     Active Substance: PANCRELIPASE AMYLASE\PANCRELIPASE LIPASE\PANCRELIPASE PROTEASE
     Indication: Ill-defined disorder
     Dates: start: 20250214
  12. FINASTERIDE [Concomitant]
     Active Substance: FINASTERIDE
     Indication: Ill-defined disorder
     Dosage: TAKE ONE DAILY
     Dates: start: 20250214
  13. CARBOHYDRATES\FATTY ACIDS\MINERALS\PROTEIN\VITAMINS [Concomitant]
     Active Substance: CARBOHYDRATES\FATTY ACIDS\MINERALS\PROTEIN\VITAMINS
     Indication: Ill-defined disorder
     Dosage: TAKE TWO DAILY. ONLY SUPPLY VANILLA AND STRAWBE...
     Dates: start: 20250214
  14. GAVISCON [Concomitant]
     Active Substance: ALUMINUM HYDROXIDE\MAGNESIUM CARBONATE
     Indication: Ill-defined disorder
     Dates: start: 20250214, end: 20250512
  15. OMEPRAZOLE [Concomitant]
     Active Substance: OMEPRAZOLE
     Indication: Ill-defined disorder
     Dates: start: 20250214
  16. SIMBRINZA [Concomitant]
     Active Substance: BRIMONIDINE TARTRATE\BRINZOLAMIDE
     Indication: Ill-defined disorder
     Dosage: APPLY TO BOTH EYES TWICE A DAY AS DIRECTED BY O...
     Dates: start: 20250214
  17. TAMSULOSIN HYDROCHLORIDE [Concomitant]
     Active Substance: TAMSULOSIN HYDROCHLORIDE
     Indication: Ill-defined disorder
     Dosage: TAKE ONE DAILY
     Dates: start: 20250214
  18. CARBOCYSTEINE [Concomitant]
     Active Substance: CARBOCYSTEINE
     Indication: Secretion discharge
     Dosage: TAKE TWO CAPSULES TWICE A DAY TO REDUCE MUCUS O...
     Dates: start: 20250304
  19. MIRTAZAPINE [Concomitant]
     Active Substance: MIRTAZAPINE
     Indication: Ill-defined disorder
     Dosage: TAKE ONE TABLET AT BEDTIME
     Dates: start: 20250311
  20. FUROSEMIDE [Concomitant]
     Active Substance: FUROSEMIDE
     Indication: Ill-defined disorder
     Dosage: TAKE ONE EACH MORNING
     Dates: start: 20250701
  21. MELOXICAM [Concomitant]
     Active Substance: MELOXICAM
     Indication: Ill-defined disorder
     Dosage: TAKE ONE DAILY
     Dates: start: 20250701

REACTIONS (3)
  - Peripheral swelling [Not Recovered/Not Resolved]
  - Oedema [Unknown]
  - Pain in jaw [Unknown]
